FAERS Safety Report 10886940 (Version 3)
Quarter: 2015Q2

REPORT INFORMATION
  Report Type: Spontaneous
  Country: US (occurrence: US)
  Receive Date: 20150304
  Receipt Date: 20150414
  Transmission Date: 20150821
  Serious: Yes (Other)
  Sender: FDA-Public Use
  Company Number: US-PFIZER INC-2015075111

PATIENT
  Age: 52 Year
  Sex: Male
  Weight: 84 kg

DRUGS (1)
  1. CHANTIX [Suspect]
     Active Substance: VARENICLINE TARTRATE
     Indication: SMOKING CESSATION THERAPY
     Dosage: 1 MG, 2X/DAY
     Route: 048
     Dates: start: 20141031

REACTIONS (4)
  - Stress [Unknown]
  - Drug ineffective [Unknown]
  - Homicidal ideation [Not Recovered/Not Resolved]
  - Nausea [Not Recovered/Not Resolved]

NARRATIVE: CASE EVENT DATE: 20141031
